FAERS Safety Report 6735946-2 (Version None)
Quarter: 2010Q2

REPORT INFORMATION
  Report Type: 
  Country: None (occurrence: None)
  Receive Date: 20100521
  Receipt Date: 20100514
  Transmission Date: 20101027
  Serious: Yes (Hospitalization)
  Sender: FDA-Public Use
  Company Number: B0652880A

PATIENT
  Sex: Male

DRUGS (7)
  1. ARIXTRA [Suspect]
     Indication: THROMBOSIS PROPHYLAXIS
     Dosage: 10MG PER DAY
     Route: 058
     Dates: start: 20100324, end: 20100403
  2. DILTIAZEM [Concomitant]
     Dosage: 300MG IN THE MORNING
     Route: 048
  3. COVERSYL [Concomitant]
     Dosage: 4MG IN THE MORNING
     Route: 048
  4. BEFIZAL [Concomitant]
     Dosage: 1UNIT AT NIGHT
     Route: 065
  5. PARACETAMOL [Concomitant]
     Dosage: 2UNIT THREE TIMES PER DAY
     Route: 065
  6. CEFTRIAXONE [Concomitant]
     Indication: ERYSIPELAS
     Route: 065
     Dates: start: 20100301
  7. AUGMENTIN '125' [Concomitant]
     Indication: ERYSIPELAS
     Route: 065
     Dates: start: 20100324, end: 20100325

REACTIONS (6)
  - GASTRIC ULCER HAEMORRHAGE, OBSTRUCTIVE [None]
  - GASTROINTESTINAL ULCER [None]
  - HAEMATOMA [None]
  - HAEMOGLOBIN DECREASED [None]
  - IMPAIRED GASTRIC EMPTYING [None]
  - OVERDOSE [None]
